FAERS Safety Report 21019120 (Version 1)
Quarter: 2022Q2

REPORT INFORMATION
  Report Type: Report from Study
  Country: US (occurrence: US)
  Receive Date: 20220628
  Receipt Date: 20220628
  Transmission Date: 20220721
  Serious: Yes (Other)
  Sender: FDA-Public Use
  Company Number: US-JAZZ-2022-US-008141

PATIENT
  Age: 49 Year
  Sex: Female

DRUGS (5)
  1. XYREM [Suspect]
     Active Substance: SODIUM OXYBATE
     Indication: Narcolepsy
     Dosage: 2.25 GRAM, BID
     Route: 048
     Dates: start: 202112
  2. XYREM [Suspect]
     Active Substance: SODIUM OXYBATE
     Indication: Cataplexy
     Dosage: 3 GRAM, BID
     Route: 048
     Dates: start: 202203
  3. XYREM [Suspect]
     Active Substance: SODIUM OXYBATE
     Indication: Somnolence
  4. DROSPIRENONE [Concomitant]
     Active Substance: DROSPIRENONE
     Dosage: 0000
     Dates: start: 20211226
  5. FLUTICASONE PROPIONATE [Concomitant]
     Active Substance: FLUTICASONE PROPIONATE
     Dosage: 0000
     Dates: start: 20220103

REACTIONS (7)
  - Tonsillectomy [Unknown]
  - Adenoidectomy [Unknown]
  - Depression [Not Recovered/Not Resolved]
  - Intentional dose omission [Unknown]
  - Wrong dose [Unknown]
  - Anxiety [Unknown]
  - Post procedural infection [Unknown]

NARRATIVE: CASE EVENT DATE: 20220217
